FAERS Safety Report 5163275-X (Version None)
Quarter: 2006Q4

REPORT INFORMATION
  Report Type: 
  Country: None (occurrence: None)
  Receive Date: 20061204
  Receipt Date: 20061103
  Transmission Date: 20070319
  Serious: Yes (Other)
  Sender: FDA-Public Use
  Company Number: PHNR2006AU01513

PATIENT
  Age: 19 Year
  Sex: Male

DRUGS (3)
  1. CLOZARIL [Suspect]
     Indication: SCHIZOPHRENIA
     Dosage: 450 MG, QD (12.5 - 600MG DAILY)
     Route: 048
     Dates: start: 20050712, end: 20061114
  2. CLOZARIL [Suspect]
     Dosage: 400 MG DAILY
     Dates: start: 20061114
  3. BUSCOPAN [Concomitant]
     Indication: SALIVARY HYPERSECRETION
     Dosage: 20MG DAILY
     Dates: start: 20051101

REACTIONS (12)
  - BUNDLE BRANCH BLOCK RIGHT [None]
  - CARDIAC DISORDER [None]
  - CHEST PAIN [None]
  - DYSPNOEA [None]
  - ECHOCARDIOGRAM ABNORMAL [None]
  - EJECTION FRACTION [None]
  - ELECTROCARDIOGRAM ABNORMAL [None]
  - OVERWEIGHT [None]
  - REFLUX OESOPHAGITIS [None]
  - SEDATION [None]
  - VENTRICULAR DYSFUNCTION [None]
  - VENTRICULAR HYPOKINESIA [None]
